FAERS Safety Report 14964780 (Version 2)
Quarter: 2021Q2

REPORT INFORMATION
  Report Type: Report from Study
  Country: US (occurrence: US)
  Receive Date: 20180601
  Receipt Date: 20210513
  Transmission Date: 20210716
  Serious: Yes (Hospitalization)
  Sender: FDA-Public Use
  Company Number: US-CELGENEUS-USA-20180509155

PATIENT
  Age: 75 Year
  Sex: Male
  Weight: 91.71 kg

DRUGS (2)
  1. VIDAZA [Suspect]
     Active Substance: AZACITIDINE
     Indication: CHEMOTHERAPY
     Dosage: 161 MILLIGRAM
     Route: 041
     Dates: start: 20170605, end: 20170613
  2. VADASTUXIMAB TALIRINE [Concomitant]
     Active Substance: VADASTUXIMAB TALIRINE
     Indication: ACUTE MYELOID LEUKAEMIA
     Dosage: 315 MICROGRAM
     Route: 041
     Dates: start: 20170613, end: 20170613

REACTIONS (1)
  - Febrile neutropenia [Recovered/Resolved]

NARRATIVE: CASE EVENT DATE: 20170622
